FAERS Safety Report 5421607-9 (Version None)
Quarter: 2007Q3

REPORT INFORMATION
  Report Type: 
  Country: None (occurrence: None)
  Receive Date: 20070817
  Receipt Date: 20070803
  Transmission Date: 20080115
  Serious: Yes (Other)
  Sender: FDA-Public Use
  Company Number: 2007US001899

PATIENT
  Age: 42 Year
  Sex: Female

DRUGS (2)
  1. AMBISOME [Suspect]
     Indication: DRUG USE FOR UNKNOWN INDICATION
     Dosage: 50 MG, TOTAL DOSE, IV NOS
     Route: 042
     Dates: start: 20070612
  2. ANCOTIL (FLUCYTOSINE) [Suspect]
     Indication: DRUG USE FOR UNKNOWN INDICATION
     Dosage: 2 G, QID, IV NOS
     Route: 042
     Dates: start: 20070612, end: 20070704

REACTIONS (3)
  - DRUG INTERACTION [None]
  - MUSCLE CONTRACTIONS INVOLUNTARY [None]
  - NEUROPATHY [None]
